FAERS Safety Report 19092806 (Version 1)
Quarter: 2021Q2

REPORT INFORMATION
  Report Type: Report from Study
  Country: US (occurrence: US)
  Receive Date: 20210405
  Receipt Date: 20210405
  Transmission Date: 20210717
  Serious: Yes (Other)
  Sender: FDA-Public Use
  Company Number: US-JNJFOC-20210350441

PATIENT
  Sex: Male

DRUGS (2)
  1. SPRAVATO [Suspect]
     Active Substance: ESKETAMINE
     Indication: DEPRESSION
     Dosage: 56 MG, 1 DOSE TOTAL
     Dates: start: 20200620, end: 20200620
  2. SPRAVATO [Suspect]
     Active Substance: ESKETAMINE
     Dosage: 84 MG, TOTAL 34 DOSES
     Dates: start: 20200627, end: 20210119

REACTIONS (6)
  - Malaise [Unknown]
  - Suicidal ideation [Unknown]
  - Nightmare [Unknown]
  - Therapy cessation [Unknown]
  - Eating disorder [Unknown]
  - Insomnia [Unknown]
